FAERS Safety Report 10168329 (Version 2)
Quarter: 2014Q2

REPORT INFORMATION
  Report Type: Spontaneous
  Country: DE (occurrence: DE)
  Receive Date: 20140512
  Receipt Date: 20140512
  Transmission Date: 20141212
  Serious: Yes (Death, Other)
  Sender: FDA-Public Use
  Company Number: PHHY2014DE018287

PATIENT
  Sex: Male

DRUGS (13)
  1. GALVUS [Suspect]
  2. ICANDRA [Suspect]
     Dosage: 1 DF, BID (1000 MG METF AND 50 MG VILD)
     Route: 048
  3. VALSARTAN [Suspect]
     Dosage: 1 DF, QD (160 MG)
  4. MONO-EMBOLEX [Suspect]
     Indication: THROMBOSIS PROPHYLAXIS
  5. SIMVASTATIN [Concomitant]
     Indication: HYPERCHOLESTEROLAEMIA
     Dosage: 1 DF, QD (40 MG)
     Route: 048
  6. PANTOPRAZOL [Concomitant]
     Indication: GASTRODUODENAL HAEMORRHAGE
     Dosage: 1 DF, QD (40 MG)
     Route: 048
     Dates: start: 201202
  7. AMLODINE//AMLODIPINE [Concomitant]
     Dosage: 2 DF, QD (5 MG)
  8. METFORMIN [Concomitant]
     Dosage: 1 DF, BID (1000 MG)
  9. KREON [Concomitant]
     Dosage: 1 DF, TID (25.000IU)
  10. LANTUS [Concomitant]
     Dosage: 1 DF, QD (30 IU)
  11. NOVORAPID [Concomitant]
     Dosage: UNK UKN, UNK
  12. PEPSIN [Concomitant]
     Dosage: UNK UKN, UNK
  13. SPIRONOLACTONE [Concomitant]
     Dosage: 50 MG, UNK

REACTIONS (23)
  - Pancreatic carcinoma [Fatal]
  - Tumour marker increased [Fatal]
  - Pancreatic insufficiency [Fatal]
  - Cholangitis infective [Fatal]
  - Device occlusion [Fatal]
  - Sepsis [Fatal]
  - Thrombocytopenia [Fatal]
  - Cholelithiasis [Fatal]
  - Splenic vein thrombosis [Fatal]
  - Portal vein thrombosis [Fatal]
  - Chills [Fatal]
  - Pyrexia [Fatal]
  - Jaundice [Fatal]
  - Gastric varices [Fatal]
  - Weight increased [Fatal]
  - Oesophageal candidiasis [Fatal]
  - Cholestasis [Fatal]
  - Completed suicide [Fatal]
  - Klebsiella test positive [None]
  - Enterococcus test positive [None]
  - Enterobacter test positive [None]
  - Haemoglobin decreased [None]
  - Haematocrit decreased [None]
